FAERS Safety Report 4362327-1 (Version None)
Quarter: 2004Q2

REPORT INFORMATION
  Report Type: 
  Country: None (occurrence: None)
  Receive Date: 20040517
  Receipt Date: 20040506
  Transmission Date: 20050107
  Serious: Yes (Death)
  Sender: FDA-Public Use
  Company Number: B0332285A

PATIENT
  Age: 16 Year
  Sex: Male

DRUGS (4)
  1. MYLERAN [Suspect]
     Dosage: 12 MG/KG
  2. FLUDARABINE PHOSPHATE [Suspect]
     Dosage: 150 MG/M2
  3. CYCLOPHOSPHAMIDE [Concomitant]
     Dosage: 250 MG/KG
  4. ORTHOCLONE OKT3 [Concomitant]

REACTIONS (3)
  - ADENOVIRUS INFECTION [None]
  - GRAFT VERSUS HOST DISEASE [None]
  - STEM CELL TRANSPLANT [None]
